FAERS Safety Report 24774559 (Version 1)
Quarter: 2024Q4

REPORT INFORMATION
  Report Type: Report from Study
  Country: CN (occurrence: CN)
  Receive Date: 20241225
  Receipt Date: 20241225
  Transmission Date: 20250114
  Serious: Yes (Other)
  Sender: NOVO NORDISK
  Company Number: CN-NOVOPROD-1280378

PATIENT
  Age: 20 Year
  Sex: Male
  Weight: 50 kg

DRUGS (3)
  1. NOVOEIGHT [Suspect]
     Active Substance: ANTIHEMOPHILIC FACTOR, HUMAN RECOMBINANT
     Dosage: 3000 IU, QOD(DURING THE HAEMORRHAGE TREATMENT PERIOD)
     Route: 042
     Dates: start: 20240912
  2. NOVOEIGHT [Suspect]
     Active Substance: ANTIHEMOPHILIC FACTOR, HUMAN RECOMBINANT
     Dosage: 3000 IU, QOD(DURING THE HAEMORRHAGE TREATMENT PERIOD)
     Route: 042
  3. NOVOEIGHT [Suspect]
     Active Substance: ANTIHEMOPHILIC FACTOR, HUMAN RECOMBINANT
     Indication: Factor VIII deficiency
     Dosage: 2000 IU, QOD(DURING THE PREVENTION PERIOD)
     Route: 042
     Dates: start: 202309

REACTIONS (3)
  - Haemarthrosis [Recovering/Resolving]
  - Haemarthrosis [Unknown]
  - Haemophilic arthropathy [Recovering/Resolving]
